FAERS Safety Report 10795489 (Version 1)
Quarter: 2015Q1

REPORT INFORMATION
  Report Type: Spontaneous
  Country: IT (occurrence: IT)
  Receive Date: 20150215
  Receipt Date: 20150215
  Transmission Date: 20150721
  Serious: Yes (Death, Life-Threatening, Hospitalization, Other)
  Sender: FDA-Public Use
  Company Number: IT-WATSON-2015-01638

PATIENT
  Age: 70 Year
  Sex: Female
  Weight: 117 kg

DRUGS (5)
  1. IRBESARTAN (UNKNOWN) [Suspect]
     Active Substance: IRBESARTAN
     Indication: PRODUCT USED FOR UNKNOWN INDICATION
     Dosage: 300 MG, UNKNOWN
     Route: 065
  2. INSULIN [Suspect]
     Active Substance: INSULIN NOS
     Indication: TYPE 2 DIABETES MELLITUS
     Dosage: UNK 3 OR 4 TIMES PER DAY
     Route: 065
  3. HEPARIN [Suspect]
     Active Substance: HEPARIN SODIUM
     Indication: ANTICOAGULANT THERAPY
     Dosage: 1 DF, DAILY
     Route: 065
  4. FUROSEMIDE (UNKNOWN) [Suspect]
     Active Substance: FUROSEMIDE
     Indication: PRODUCT USED FOR UNKNOWN INDICATION
     Dosage: 125 MG, UNKNOWN
     Route: 065
  5. METFORMIN (UNKNOWN) [Suspect]
     Active Substance: METFORMIN HYDROCHLORIDE
     Indication: TYPE 2 DIABETES MELLITUS
     Dosage: 2500 MG, DAILY, 500MG AT 8AM,1000MG AT 1PM, 1000MG AT 7PM
     Route: 065

REACTIONS (13)
  - Pruritus [Unknown]
  - Urticaria [Unknown]
  - Abdominal pain [Unknown]
  - Hypophagia [Unknown]
  - Ocular icterus [Unknown]
  - Vomiting [Unknown]
  - Hyperkalaemia [Unknown]
  - Decreased appetite [Unknown]
  - Lactic acidosis [Fatal]
  - Renal impairment [Unknown]
  - Cardio-respiratory arrest [Fatal]
  - Overdose [Fatal]
  - Drug level above therapeutic [Fatal]
